FAERS Safety Report 10050776 (Version 1)
Quarter: 2014Q2

REPORT INFORMATION
  Report Type: Spontaneous
  Country: US (occurrence: US)
  Receive Date: 20140401
  Receipt Date: 20140401
  Transmission Date: 20141212
  Serious: No
  Sender: FDA-Public Use
  Company Number: US-ASTRAZENECA-2013SE75152

PATIENT
  Age: 56 Year
  Sex: Female

DRUGS (3)
  1. NEXIUM [Suspect]
     Route: 048
     Dates: start: 2011, end: 20130720
  2. PRILOSEC OTC [Suspect]
     Dosage: UNKNOWN UNK
     Route: 048
     Dates: start: 2008
  3. OMEPRAZOLE [Suspect]
     Route: 048

REACTIONS (3)
  - Pain [Unknown]
  - Intentional product misuse [Unknown]
  - Drug ineffective [Unknown]
